FAERS Safety Report 5760222-4 (Version None)
Quarter: 2008Q2

REPORT INFORMATION
  Report Type: 
  Country: None (occurrence: None)
  Receive Date: 20080602
  Receipt Date: 20080526
  Transmission Date: 20081010
  Serious: Yes (Hospitalization)
  Sender: FDA-Public Use
  Company Number: POMP-1000088

PATIENT
  Age: 2 Year
  Sex: Female

DRUGS (3)
  1. MYOZYME [Suspect]
     Indication: GLYCOGEN STORAGE DISEASE TYPE II
     Dosage: 20 MG/KG, Q2W, INTRAVENOUS
     Route: 042
     Dates: start: 20060722
  2. CAPOTEN [Concomitant]
  3. MYOZYME [Suspect]

REACTIONS (10)
  - ALANINE AMINOTRANSFERASE INCREASED [None]
  - ASPARTATE AMINOTRANSFERASE INCREASED [None]
  - BLOOD CREATINE PHOSPHOKINASE INCREASED [None]
  - BLOOD LACTATE DEHYDROGENASE INCREASED [None]
  - CHEST X-RAY ABNORMAL [None]
  - HAEMATOCRIT DECREASED [None]
  - LUNG INFILTRATION [None]
  - PRODUCTIVE COUGH [None]
  - PYREXIA [None]
  - VIRAL INFECTION [None]
